FAERS Safety Report 17326090 (Version 1)
Quarter: 2020Q1

REPORT INFORMATION
  Report Type: Spontaneous
  Country: US (occurrence: US)
  Receive Date: 20200127
  Receipt Date: 20200127
  Transmission Date: 20200409
  Serious: No
  Sender: FDA-Public Use
  Company Number: US-REGENERON PHARMACEUTICALS, INC.-2019-13750

PATIENT

DRUGS (2)
  1. EYLEA [Suspect]
     Active Substance: AFLIBERCEPT
     Indication: CHORIORETINOPATHY
     Dosage: EVERY 4 WEEKS, THEN EVERY 6 WEEKS, THEN EVERY 8 WEEKS AND THEN EVERY 12 WEEKS FOR 3 MONTHS
     Route: 031
     Dates: start: 20170327, end: 20180720
  2. EYLEA [Suspect]
     Active Substance: AFLIBERCEPT
     Dosage: LAST DOSE,EVERY 4 WEEKS, THEN EVERY 6 WEEKS, THEN EVERY 8 WEEKS AND THEN EVERY 12 WEEKS FOR 3 MONTHS
     Route: 031
     Dates: start: 20180720, end: 20180720

REACTIONS (1)
  - Off label use [Unknown]

NARRATIVE: CASE EVENT DATE: 20170327
